FAERS Safety Report 4631444-0 (Version None)
Quarter: 2005Q2

REPORT INFORMATION
  Report Type: 
  Country: None (occurrence: None)
  Receive Date: 20050407
  Receipt Date: 20050330
  Transmission Date: 20051028
  Serious: Yes (Death)
  Sender: FDA-Public Use
  Company Number: 163-20785-04090393

PATIENT
  Age: 62 Year
  Sex: Male

DRUGS (1)
  1. THALOMID [Suspect]
     Indication: NON-HODGKIN'S LYMPHOMA
     Dosage: 100 MG, QHS, ORAL
     Route: 048
     Dates: start: 20040419, end: 20040701

REACTIONS (1)
  - ACUTE MYELOID LEUKAEMIA [None]
